FAERS Safety Report 9632087 (Version 1)
Quarter: 2013Q4

REPORT INFORMATION
  Report Type: Spontaneous
  Country: US (occurrence: None)
  Receive Date: 20131017
  Receipt Date: 20131017
  Transmission Date: 20140711
  Serious: No
  Sender: FDA-Public Use
  Company Number: None

PATIENT
  Age: 53 Year
  Sex: Female
  Weight: 68.95 kg

DRUGS (14)
  1. BYDUREON [Suspect]
     Indication: TYPE 2 DIABETES MELLITUS
     Dosage: 1 SINGLE DOSE TRAY ONCE A WEEK BY INJECTION
     Dates: start: 20131001, end: 20131008
  2. CLONIDINE [Concomitant]
  3. TEGRETOL [Concomitant]
  4. ACEBUTOLOL [Concomitant]
  5. COZAAR [Concomitant]
  6. DOXEPIN [Concomitant]
  7. MEDROXYPROGESTERONE [Concomitant]
  8. ESTRACE [Concomitant]
  9. DEMECLOCYCLINE [Concomitant]
  10. LANTUS [Concomitant]
  11. BYETTA [Concomitant]
  12. HUMALOG [Concomitant]
  13. SIMVASTATIN [Concomitant]
  14. ASPIRIN [Concomitant]

REACTIONS (1)
  - Product quality issue [None]
